FAERS Safety Report 9671020 (Version 1)
Quarter: 2013Q4

REPORT INFORMATION
  Report Type: Report from Study
  Country: US (occurrence: US)
  Receive Date: 20131106
  Receipt Date: 20131106
  Transmission Date: 20140711
  Serious: No
  Sender: FDA-Public Use
  Company Number: US-B.I. PHARMACEUTICALS,INC./RIDGEFIELD-2013-BI-34059BP

PATIENT
  Sex: Male

DRUGS (1)
  1. GILOTRIF [Suspect]
     Dosage: 1 TABLET BY MOUTH DAILY
     Route: 048

REACTIONS (1)
  - Malaise [Unknown]
